FAERS Safety Report 24975825 (Version 1)
Quarter: 2025Q1

REPORT INFORMATION
  Report Type: Report from Study
  Country: EG (occurrence: EG)
  Receive Date: 20250217
  Receipt Date: 20250217
  Transmission Date: 20250409
  Serious: Yes (Disabling)
  Sender: NOVARTIS
  Company Number: EG-002147023-NVSC2025EG025602

PATIENT
  Age: 35 Year
  Sex: Female
  Weight: 39 kg

DRUGS (3)
  1. KISQALI [Suspect]
     Active Substance: RIBOCICLIB
     Indication: Breast cancer stage IV
     Dosage: 200 MG, TID (1 TABLET 3 TIMES DAILY FOR 21 DAYS AND 1 WEEK OFF)
     Route: 048
     Dates: start: 20250204
  2. KISQALI [Suspect]
     Active Substance: RIBOCICLIB
     Indication: Metastases to liver
  3. KISQALI [Suspect]
     Active Substance: RIBOCICLIB
     Indication: Breast cancer metastatic

REACTIONS (10)
  - Fatigue [Not Recovered/Not Resolved]
  - Vomiting [Recovered/Resolved]
  - Lethargy [Unknown]
  - Hypersomnia [Unknown]
  - Constipation [Not Recovered/Not Resolved]
  - Anal fissure [Unknown]
  - Pain [Unknown]
  - Liver function test abnormal [Unknown]
  - Aspartate aminotransferase increased [Unknown]
  - Off label use [Unknown]

NARRATIVE: CASE EVENT DATE: 20250204
